FAERS Safety Report 4653830-5 (Version None)
Quarter: 2005Q2

REPORT INFORMATION
  Report Type: 
  Country: None (occurrence: None)
  Receive Date: 20050404
  Receipt Date: 20050119
  Transmission Date: 20051028
  Serious: No
  Sender: FDA-Public Use
  Company Number: USA050188733

PATIENT
  Age: 32 Year
  Sex: Female

DRUGS (2)
  1. CYMBALTA [Suspect]
     Dosage: 60 MG DAY
     Dates: start: 20041101
  2. FLUOXETINE [Concomitant]

REACTIONS (3)
  - ANGER [None]
  - EUPHORIC MOOD [None]
  - SUICIDAL IDEATION [None]
